FAERS Safety Report 9322767 (Version 2)
Quarter: 2013Q2

REPORT INFORMATION
  Report Type: Report from Study
  Country: CA (occurrence: CA)
  Receive Date: 20130601
  Receipt Date: 20130608
  Transmission Date: 20140414
  Serious: Yes (Death, Hospitalization)
  Sender: FDA-Public Use
  Company Number: CA-ROCHE-1206991

PATIENT
  Age: 61 Year
  Sex: Male

DRUGS (5)
  1. AVASTIN [Suspect]
     Indication: GLIOBLASTOMA
     Route: 042
     Dates: start: 20120711, end: 20130311
  2. AVASTIN [Suspect]
     Route: 065
     Dates: start: 20120907
  3. AVASTIN [Suspect]
     Route: 065
     Dates: start: 20121102
  4. AVASTIN [Suspect]
     Route: 065
     Dates: start: 20121228
  5. RAMIPRIL [Concomitant]

REACTIONS (2)
  - Death [Fatal]
  - Loss of consciousness [Unknown]
